FAERS Safety Report 12406007 (Version 2)
Quarter: 2016Q2

REPORT INFORMATION
  Report Type: Spontaneous
  Country: US (occurrence: US)
  Receive Date: 20160526
  Receipt Date: 20160526
  Transmission Date: 20160815
  Serious: Yes (Other)
  Sender: FDA-Public Use
  Company Number: US-LUPIN PHARMACEUTICALS INC.-E2B_00005458

PATIENT
  Age: 14 Year
  Sex: Female
  Weight: 63.56 kg

DRUGS (2)
  1. LEVETIRACETAM TABLETS USP 750MG [Suspect]
     Active Substance: LEVETIRACETAM
     Indication: SEIZURE
     Dosage: 375 MG IN THE MORNING AND 750 MG AT NIGHT
     Route: 048
     Dates: start: 20160407
  2. LEVETIRACETAM TABLETS USP 750MG [Suspect]
     Active Substance: LEVETIRACETAM
     Dosage: 375 MG IN THE MORNING AND 375 MG AT NIGHT
     Route: 048

REACTIONS (4)
  - Drug ineffective [Recovered/Resolved]
  - Rash [Recovering/Resolving]
  - Throat irritation [Recovered/Resolved]
  - Seizure [Recovered/Resolved]

NARRATIVE: CASE EVENT DATE: 20160407
